FAERS Safety Report 4682566-X (Version None)
Quarter: 2005Q2

REPORT INFORMATION
  Report Type: 
  Country: None (occurrence: None)
  Receive Date: 20050602
  Receipt Date: 20050414
  Transmission Date: 20051028
  Serious: No
  Sender: FDA-Public Use
  Company Number: USA050495659

PATIENT
  Age: 33 Year
  Sex: Female

DRUGS (2)
  1. CYMBALTA [Suspect]
     Indication: DEPRESSION
     Dosage: 60 MG DAY
  2. DURAGESIC (FENTANYL) [Concomitant]

REACTIONS (8)
  - ANORGASMIA [None]
  - DRY MOUTH [None]
  - EMOTIONAL DISORDER [None]
  - FATIGUE [None]
  - HYPERHIDROSIS [None]
  - HYPERSOMNIA [None]
  - MEMORY IMPAIRMENT [None]
  - TRANCE [None]
